FAERS Safety Report 4993991-1 (Version None)
Quarter: 2006Q2

REPORT INFORMATION
  Report Type: 
  Country: None (occurrence: None)
  Receive Date: 20060505
  Receipt Date: 20060424
  Transmission Date: 20061013
  Serious: Yes (Disabling)
  Sender: FDA-Public Use
  Company Number: DE-GLAXOSMITHKLINE-D0049498A

PATIENT
  Age: 68 Year
  Sex: Female
  Weight: 90 kg

DRUGS (2)
  1. ZOVIRAX [Suspect]
     Indication: POST HERPETIC NEURALGIA
     Route: 048
     Dates: start: 20060106, end: 20060413
  2. SEDATIVE [Concomitant]
     Indication: SEDATION
     Dosage: .05G AS REQUIRED
     Route: 048
     Dates: start: 20060201, end: 20060401

REACTIONS (11)
  - DEPRESSION [None]
  - FATIGUE [None]
  - PAIN IN EXTREMITY [None]
  - PAIN OF SKIN [None]
  - PHOTOSENSITIVITY REACTION [None]
  - PRURITUS [None]
  - RASH [None]
  - RASH MACULAR [None]
  - RASH PAPULAR [None]
  - TRIGEMINAL NEURALGIA [None]
  - URTICARIA [None]
